FAERS Safety Report 8213407-1 (Version None)
Quarter: 2012Q1

REPORT INFORMATION
  Report Type: 
  Country: None (occurrence: None)
  Receive Date: 20120315
  Receipt Date: 20111031
  Transmission Date: 20120608
  Serious: Yes (Hospitalization)
  Sender: FDA-Public Use
  Company Number: RU-ROCHE-1010564

PATIENT
  Sex: Female
  Weight: 79 kg

DRUGS (2)
  1. METHOTREXATE [Suspect]
     Indication: RHEUMATOID ARTHRITIS
     Dosage: LAST DOSE ADMINISTERED PRIOR TO SAE: 18 SEP 2011. TEMPORARILY INTERUPPTED ON 19 SEP 2011 DUE TO THE
     Route: 048
     Dates: start: 20100116, end: 20110919
  2. ACTEMRA [Suspect]
     Indication: RHEUMATOID ARTHRITIS
     Dosage: DATE OF LAST DOSE ADMINISTERED PRIOR TO SAE: 24 AUG 2011. TEMPORARILY INTERRUPTED ON 24 AUG 2011, DU
     Route: 042
     Dates: start: 20100114, end: 20110824

REACTIONS (1)
  - GANGRENE [None]
